FAERS Safety Report 18925129 (Version 6)
Quarter: 2024Q3

REPORT INFORMATION
  Report Type: Spontaneous
  Country: US (occurrence: US)
  Receive Date: 20210222
  Receipt Date: 20240701
  Transmission Date: 20241016
  Serious: No
  Sender: PFIZER
  Company Number: US-PFIZER INC-2021139164

PATIENT
  Age: 62 Year
  Sex: Female
  Weight: 77.7 kg

DRUGS (8)
  1. PREMARIN [Suspect]
     Active Substance: ESTROGENS, CONJUGATED
     Indication: Menopausal disorder
     Dosage: 0.9 MG, DAILY (TAKE ONE TABLET (0.9 MG TOTAL) BY MOUTH 1 (ONE) TIME EACH DAY)
     Route: 048
  2. PREMARIN [Suspect]
     Active Substance: ESTROGENS, CONJUGATED
     Indication: Hot flush
     Dosage: 0.625 MG, DAILY
     Route: 048
  3. PREMARIN [Suspect]
     Active Substance: ESTROGENS, CONJUGATED
     Dosage: 0.9 MG, DAILY (TAKE ONE TABLET (0.9 MG TOTAL) BY MOUTH 1 (ONE) TIME EACH DAY)
     Route: 048
  4. CLARINEX [Concomitant]
     Active Substance: DESLORATADINE
     Dosage: 5 MG, 1X/DAY
  5. ADVIL [Concomitant]
     Active Substance: IBUPROFEN\IBUPROFEN SODIUM
     Dosage: THREE TIMES A DAY, ^TRN.^
  6. PROTONIX [Concomitant]
     Active Substance: PANTOPRAZOLE SODIUM
     Dosage: 40 MG, 1X/DAY
  7. SINGULAIR [Concomitant]
     Active Substance: MONTELUKAST SODIUM
     Dosage: 10 MG, 1X/DAY
  8. AZULFIDINE [Concomitant]
     Active Substance: SULFASALAZINE
     Dosage: 2 DF (500 MILLIGRAM), 2X/DAY

REACTIONS (10)
  - Thinking abnormal [Unknown]
  - Depression [Unknown]
  - Anxiety [Unknown]
  - Vulvovaginal dryness [Unknown]
  - Haemorrhoids [Unknown]
  - Sneezing [Unknown]
  - Hypersensitivity [Not Recovered/Not Resolved]
  - Sinus disorder [Not Recovered/Not Resolved]
  - Condition aggravated [Unknown]
  - Product prescribing error [Unknown]

NARRATIVE: CASE EVENT DATE: 20210208
